FAERS Safety Report 11280784 (Version 1)
Quarter: 2015Q3

REPORT INFORMATION
  Report Type: Spontaneous
  Country: US (occurrence: US)
  Receive Date: 20150717
  Receipt Date: 20150717
  Transmission Date: 20151125
  Serious: No
  Sender: FDA-Public Use
  Company Number: US-JNJFOC-20150411242

PATIENT
  Age: 76 Year
  Sex: Male
  Weight: 95.26 kg

DRUGS (16)
  1. NASCOBAL [Concomitant]
     Active Substance: CYANOCOBALAMIN
     Indication: BLOOD MAGNESIUM
  2. XARELTO [Suspect]
     Active Substance: RIVAROXABAN
     Indication: ATRIAL FIBRILLATION
     Route: 048
  3. LISINOPRIL. [Concomitant]
     Active Substance: LISINOPRIL
     Indication: HYPERTENSION
  4. ATORVASTATIN [Concomitant]
     Active Substance: ATORVASTATIN
     Indication: CARDIAC DISORDER
  5. AMIODARONE [Concomitant]
     Active Substance: AMIODARONE
  6. LASIX [Concomitant]
     Active Substance: FUROSEMIDE
  7. MULTIVITAMIN TABLET [Concomitant]
  8. XARELTO [Suspect]
     Active Substance: RIVAROXABAN
     Indication: ATRIAL FIBRILLATION
     Route: 048
     Dates: start: 2014
  9. PANTOPRAZOLE [Concomitant]
     Active Substance: PANTOPRAZOLE SODIUM
  10. FISH OIL [Concomitant]
     Active Substance: FISH OIL
  11. GLUCOSAMINE [Concomitant]
     Active Substance: GLUCOSAMINE
  12. BISOPROLOL [Concomitant]
     Active Substance: BISOPROLOL
  13. LIALDA [Concomitant]
     Active Substance: MESALAMINE
     Indication: BLADDER CANCER
  14. ARMOUR THYROID [Concomitant]
     Active Substance: THYROID, PORCINE\THYROID, UNSPECIFIED
  15. EPLERENONE. [Concomitant]
     Active Substance: EPLERENONE
  16. ATENOLOL. [Concomitant]
     Active Substance: ATENOLOL

REACTIONS (2)
  - Diarrhoea [Unknown]
  - Product colour issue [Unknown]

NARRATIVE: CASE EVENT DATE: 20150410
